FAERS Safety Report 20038810 (Version 1)
Quarter: 2021Q4

REPORT INFORMATION
  Report Type: Spontaneous
  Country: CA (occurrence: CA)
  Receive Date: 20211105
  Receipt Date: 20211105
  Transmission Date: 20220304
  Serious: Yes (Hospitalization)
  Sender: FDA-Public Use
  Company Number: CA-TEVA-2021-CA-1972103

PATIENT
  Age: 17 Year
  Sex: Female

DRUGS (4)
  1. QUETIAPINE [Suspect]
     Active Substance: QUETIAPINE
     Indication: Mental disorder
     Route: 065
  2. CLONAZEPAM [Concomitant]
     Active Substance: CLONAZEPAM
  3. LORAZEPAM [Concomitant]
     Active Substance: LORAZEPAM
  4. LOXAPINE [Concomitant]
     Active Substance: LOXAPINE

REACTIONS (7)
  - Chills [Unknown]
  - Haematemesis [Unknown]
  - Headache [Unknown]
  - Nausea [Unknown]
  - Tardive dyskinesia [Unknown]
  - Tinnitus [Unknown]
  - Vomiting [Unknown]
